FAERS Safety Report 4359335-3 (Version None)
Quarter: 2004Q2

REPORT INFORMATION
  Report Type: 
  Country: None (occurrence: None)
  Receive Date: 20040512
  Receipt Date: 20040430
  Transmission Date: 20050107
  Serious: Yes (Other)
  Sender: FDA-Public Use
  Company Number: DE-JNJFOC-20040500404

PATIENT

DRUGS (4)
  1. REOPRO [Suspect]
     Indication: ACUTE MYOCARDIAL INFARCTION
     Dosage: 0.25 MG/KG, 1 IN 1 TOTAL; INTRAVENOUS (SEE IMAGE)
     Route: 042
  2. RETEVASE [Suspect]
     Indication: ACUTE MYOCARDIAL INFARCTION
     Dosage: 0.5 IU, 2 IN TOTAL; INTRAVENOUS
     Route: 042
  3. ASPIRIN [Concomitant]
  4. HEPARIN [Concomitant]

REACTIONS (2)
  - DRUG INTERACTION [None]
  - VENTRICULAR FIBRILLATION [None]
